FAERS Safety Report 23565766 (Version 6)
Quarter: 2024Q4

REPORT INFORMATION
  Report Type: Report from Study
  Country: JP (occurrence: JP)
  Receive Date: 20240226
  Receipt Date: 20241031
  Transmission Date: 20250115
  Serious: Yes (Other)
  Sender: ABBVIE
  Company Number: JP-TAKEDA-2024TJP002737

PATIENT
  Age: 58 Year
  Sex: Male
  Weight: 76 kg

DRUGS (3)
  1. LEUPROLIDE ACETATE [Suspect]
     Active Substance: LEUPROLIDE ACETATE
     Indication: Bulbospinal muscular atrophy congenital
     Dosage: 11.25 MILLIGRAM, Q3MONTHS
     Route: 058
     Dates: start: 20171215
  2. BEZAFIBRATE [Concomitant]
     Active Substance: BEZAFIBRATE
     Indication: Product used for unknown indication
     Dosage: 400 MILLIGRAM, DOSE FORM: UNKNOWN
     Route: 065
  3. ACTOS [Concomitant]
     Active Substance: PIOGLITAZONE HYDROCHLORIDE
     Indication: Product used for unknown indication
     Dosage: 15 MILLIGRAM, DOSE FORM: UNKNOWN
     Route: 065

REACTIONS (2)
  - Atrial fibrillation [Recovered/Resolved]
  - Diabetes mellitus [Not Recovered/Not Resolved]

NARRATIVE: CASE EVENT DATE: 20191016
